FAERS Safety Report 18802232 (Version 1)
Quarter: 2021Q1

REPORT INFORMATION
  Report Type: Spontaneous
  Country: RU (occurrence: RU)
  Receive Date: 20210128
  Receipt Date: 20210128
  Transmission Date: 20210419
  Serious: Yes (Hospitalization, Other)
  Sender: FDA-Public Use
  Company Number: RU-ASTRAZENECA-2021A010611

PATIENT
  Age: 64 Year
  Sex: Male
  Weight: 96 kg

DRUGS (4)
  1. PENTOXIFYLLINE. [Concomitant]
     Active Substance: PENTOXIFYLLINE
  2. OCTOLIPEN [Concomitant]
     Dosage: INJECTIONS PERIODICALLY
  3. ELIQUIS [Concomitant]
     Active Substance: APIXABAN
     Dosage: 5 MG 2 TIMES A DAY
  4. XIGDUO XR [Suspect]
     Active Substance: DAPAGLIFLOZIN PROPANEDIOL\METFORMIN HYDROCHLORIDE
     Indication: TYPE 2 DIABETES MELLITUS
     Dosage: 10/1000 MG EVERY MORNING
     Route: 048

REACTIONS (2)
  - Testicular necrosis [Recovered/Resolved]
  - Product use issue [Not Recovered/Not Resolved]
